FAERS Safety Report 12898801 (Version 11)
Quarter: 2019Q2

REPORT INFORMATION
  Report Type: Report from Study
  Country: AU (occurrence: AU)
  Receive Date: 20161101
  Receipt Date: 20190412
  Transmission Date: 20190711
  Serious: Yes (Hospitalization)
  Sender: FDA-Public Use
  Company Number: AU-ROCHE-1845828

PATIENT
  Age: 82 Year
  Sex: Female
  Weight: 65 kg

DRUGS (24)
  1. OBINUTUZUMAB. [Suspect]
     Active Substance: OBINUTUZUMAB
     Dosage: CYCLE 1 DAY 2, START TIME 11:05, END TIME :16:00?PLANNED DOSE 900 MG IN 250 ML, RATE OF INFUSION 111
     Route: 042
     Dates: start: 20161022, end: 20161022
  2. OBINUTUZUMAB. [Suspect]
     Active Substance: OBINUTUZUMAB
     Dosage: CYCLE 2 DAY 1, START TIME 09:17, END TIME :13:05?PLANNED DOSE 1000 MG IN 250 ML, RATE OF INFUSION 10
     Route: 042
     Dates: start: 20161117, end: 20161117
  3. BGB-3111 [Suspect]
     Active Substance: ZANUBRUTINIB
     Route: 048
     Dates: start: 20161215, end: 20170111
  4. OBINUTUZUMAB. [Suspect]
     Active Substance: OBINUTUZUMAB
     Dosage: CYCLE 4 DAY 1, START TIME 09.45, END TIME :13:05?PLANNED DOSE 1000 MG IN 250 ML, RATE OF INFUSION 50
     Route: 042
     Dates: start: 20170112, end: 20170112
  5. METFORMIN [Concomitant]
     Active Substance: METFORMIN HYDROCHLORIDE
     Indication: TYPE 2 DIABETES MELLITUS
     Route: 048
     Dates: start: 2011
  6. STEMETIL [Concomitant]
     Active Substance: PROCHLORPERAZINE MALEATE
     Indication: VERTIGO POSITIONAL
     Dosage: AS REQUIRED
     Route: 048
     Dates: start: 2011
  7. ATENOLOL. [Concomitant]
     Active Substance: ATENOLOL
     Indication: HYPERTENSION
     Route: 048
     Dates: start: 2011
  8. CLEXANE [Concomitant]
     Active Substance: ENOXAPARIN SODIUM
     Indication: PROPHYLAXIS
     Route: 058
     Dates: start: 20161021, end: 20161022
  9. OBINUTUZUMAB. [Suspect]
     Active Substance: OBINUTUZUMAB
     Indication: LYMPHOCYTIC LYMPHOMA
     Dosage: DAY 1 OF CYCLE 1, START TIME 10:58, END TIME :15:10?PLANNED DOSE 100 MG IN 112 ML, RATE OF INFUSION
     Route: 042
     Dates: start: 20161020, end: 20161020
  10. BGB-3111 [Suspect]
     Active Substance: ZANUBRUTINIB
     Indication: LYMPHOCYTIC LYMPHOMA
     Dosage: WHITE, NO OF CAPS 4?CYCLE 1
     Route: 048
     Dates: start: 20161020, end: 20161116
  11. BGB-3111 [Suspect]
     Active Substance: ZANUBRUTINIB
     Dosage: WHITE, NO OF CAPS 4?CYCLE 2
     Route: 048
     Dates: start: 20161117, end: 20161214
  12. BGB-3111 [Suspect]
     Active Substance: ZANUBRUTINIB
     Route: 048
     Dates: start: 20170112
  13. ASPIRIN. [Concomitant]
     Active Substance: ASPIRIN
     Indication: PROPHYLAXIS
     Route: 048
     Dates: start: 2001, end: 20161019
  14. OBINUTUZUMAB. [Suspect]
     Active Substance: OBINUTUZUMAB
     Dosage: CYCLE 1 DAY 8
     Route: 042
     Dates: start: 20161027, end: 20161027
  15. CHOLECALCIFEROL [Concomitant]
     Active Substance: CHOLECALCIFEROL
     Indication: OSTEOPOROSIS
     Route: 048
     Dates: start: 2001
  16. ZYRTEC [Concomitant]
     Active Substance: CETIRIZINE HYDROCHLORIDE
     Indication: PREMEDICATION
     Dosage: PRE OBINUTUZUMAB INFUSION
     Route: 048
     Dates: start: 20161020
  17. PANADOL (AUSTRALIA) [Concomitant]
     Indication: OSTEOPOROSIS
     Dosage: AS REQUIRED
     Route: 048
     Dates: start: 2006
  18. ASPIRIN. [Concomitant]
     Active Substance: ASPIRIN
     Route: 048
     Dates: start: 20161021, end: 20161022
  19. OBINUTUZUMAB. [Suspect]
     Active Substance: OBINUTUZUMAB
     Dosage: CYCLE 1 DAY 15, START TIME 09:45, END TIME :13:05?PLANNED DOSE 1000 MG IN 250 ML, RATE OF INFUSION 1
     Route: 042
     Dates: start: 20161103, end: 20161103
  20. OBINUTUZUMAB. [Suspect]
     Active Substance: OBINUTUZUMAB
     Dosage: CYCLE 3 DAY 1, START TIME 10.00, END TIME :13:55?PLANNED DOSE 1000 MG IN 250 ML, RATE OF INFUSION 10
     Route: 042
     Dates: start: 20161215, end: 20161215
  21. GLICAZIDA [Concomitant]
     Active Substance: GLICLAZIDE
     Route: 048
     Dates: start: 2016
  22. PERINDOPRIL [Concomitant]
     Active Substance: PERINDOPRIL
     Indication: HYPERTENSION
     Route: 048
     Dates: start: 2011
  23. DEXAMETHASONE. [Concomitant]
     Active Substance: DEXAMETHASONE
     Indication: PREMEDICATION
     Dosage: PRE OBINUTUZUMAB INFUSION
     Route: 042
     Dates: start: 20161020
  24. PARACETAMOL [Concomitant]
     Active Substance: ACETAMINOPHEN
     Indication: PREMEDICATION
     Dosage: PRE OBINUTUZUMAB INFUSION
     Route: 048
     Dates: start: 20161020

REACTIONS (2)
  - Infusion related reaction [Recovered/Resolved]
  - Confusional state [Recovered/Resolved]

NARRATIVE: CASE EVENT DATE: 20161021
